FAERS Safety Report 16627485 (Version 1)
Quarter: 2019Q3

REPORT INFORMATION
  Report Type: Spontaneous
  Country: AR (occurrence: AR)
  Receive Date: 20190724
  Receipt Date: 20190724
  Transmission Date: 20191004
  Serious: Yes (Other)
  Sender: FDA-Public Use
  Company Number: AR-TEVA-2019-AR-1084007

PATIENT
  Age: 48 Year
  Sex: Female

DRUGS (4)
  1. NEOTIGASON [Suspect]
     Active Substance: ACITRETIN
     Dosage: 1 DOSAGE FORMS DAILY;
     Route: 065
     Dates: start: 20190530
  2. NEOTIGASON [Suspect]
     Active Substance: ACITRETIN
     Indication: PSORIASIS
     Dosage: 1 DOSAGE FORMS DAILY;
     Route: 065
     Dates: start: 201811, end: 201902
  3. NEOTIGASON [Suspect]
     Active Substance: ACITRETIN
     Dosage: 1 DOSAGE FORMS DAILY;
     Route: 065
     Dates: start: 20190522
  4. TIBOLONE [Concomitant]
     Active Substance: TIBOLONE
     Route: 065

REACTIONS (3)
  - Visual impairment [Recovering/Resolving]
  - Discomfort [Recovering/Resolving]
  - Viral infection [Recovering/Resolving]

NARRATIVE: CASE EVENT DATE: 20190522
